FAERS Safety Report 5755558-7 (Version None)
Quarter: 2008Q2

REPORT INFORMATION
  Report Type: 
  Country: None (occurrence: None)
  Receive Date: 20080530
  Receipt Date: 20080530
  Transmission Date: 20081010
  Serious: No
  Sender: FDA-Public Use
  Company Number: None

PATIENT
  Age: 67 Year
  Sex: Female
  Weight: 68.4932 kg

DRUGS (1)
  1. PACLITAXEL [Suspect]
     Indication: BREAST CANCER
     Dosage: 132 MG WEEKLY IV DRIP
     Route: 041
     Dates: start: 20080521, end: 20080521

REACTIONS (1)
  - CARDIO-RESPIRATORY ARREST [None]
